FAERS Safety Report 12221685 (Version 1)
Quarter: 2016Q1

REPORT INFORMATION
  Report Type: Spontaneous
  Country: US (occurrence: US)
  Receive Date: 20160330
  Receipt Date: 20160330
  Transmission Date: 20160526
  Serious: No
  Sender: FDA-Public Use
  Company Number: US-PERRIGO-16US000495

PATIENT
  Age: 3 Year
  Sex: Male
  Weight: 15.87 kg

DRUGS (1)
  1. GOOD SENSE COMPLETE [Suspect]
     Active Substance: CALCIUM CARBONATE\FAMOTIDINE\MAGNESIUM HYDROXIDE
     Indication: ACCIDENTAL EXPOSURE TO PRODUCT BY CHILD
     Dosage: 2 TABLETS, SINGLE
     Route: 048
     Dates: start: 20160118, end: 20160118

REACTIONS (2)
  - Accidental exposure to product by child [Recovered/Resolved]
  - No adverse event [None]

NARRATIVE: CASE EVENT DATE: 20160118
